FAERS Safety Report 7532580-1 (Version None)
Quarter: 2011Q2

REPORT INFORMATION
  Report Type: 
  Country: None (occurrence: None)
  Receive Date: 20110608
  Receipt Date: 20110602
  Transmission Date: 20111010
  Serious: Yes (Life-Threatening, Hospitalization, Disabling, Other)
  Sender: FDA-Public Use
  Company Number: PHHY2011NL21167

PATIENT
  Sex: Male
  Weight: 67 kg

DRUGS (1)
  1. DICLOFENAC SODIUM [Suspect]
     Indication: BURSITIS
     Dosage: 75 MG TWICE A DAY
     Route: 048
     Dates: start: 20080714, end: 20080825

REACTIONS (6)
  - MICROSCOPIC POLYANGIITIS [None]
  - RENAL FAILURE [None]
  - PERIPHERAL COLDNESS [None]
  - WEIGHT DECREASED [None]
  - GENERAL PHYSICAL CONDITION ABNORMAL [None]
  - VASCULITIS [None]
